FAERS Safety Report 11993535 (Version 1)
Quarter: 2016Q1

REPORT INFORMATION
  Report Type: Spontaneous
  Country: US (occurrence: None)
  Receive Date: 20160202
  Receipt Date: 20160202
  Transmission Date: 20160526
  Serious: Yes (Hospitalization)
  Sender: FDA-Public Use
  Company Number: None

PATIENT
  Age: 61 Year
  Sex: Male
  Weight: 78.9 kg

DRUGS (1)
  1. MEMANTINE HYDROCHLORIDE [Suspect]
     Active Substance: MEMANTINE HYDROCHLORIDE
     Dates: end: 20160127

REACTIONS (5)
  - Dyspnoea [None]
  - Cough [None]
  - Disease progression [None]
  - Chest pain [None]
  - Productive cough [None]

NARRATIVE: CASE EVENT DATE: 20160126
